FAERS Safety Report 7500646-8 (Version None)
Quarter: 2011Q2

REPORT INFORMATION
  Report Type: 
  Country: None (occurrence: None)
  Receive Date: 20110524
  Receipt Date: 20110516
  Transmission Date: 20111010
  Serious: Yes (Hospitalization)
  Sender: FDA-Public Use
  Company Number: JP-AMGEN-JPNCT2011026635

PATIENT
  Age: 69 Year
  Sex: Male
  Weight: 57 kg

DRUGS (16)
  1. LEUCOVORIN CALCIUM [Suspect]
     Indication: COLORECTAL CANCER
     Route: 041
     Dates: start: 20100727, end: 20110111
  2. PANITUMUMAB [Suspect]
     Indication: COLORECTAL CANCER
     Dosage: 6 MG/KG, Q2WK
     Route: 041
     Dates: start: 20100727, end: 20110308
  3. IRINOTECAN HCL [Suspect]
     Indication: COLORECTAL CANCER
     Route: 041
     Dates: start: 20110123, end: 20110308
  4. HIRUDOID [Concomitant]
     Dosage: UNK
     Route: 062
  5. FLUOROURACIL [Suspect]
     Route: 041
     Dates: start: 20110123, end: 20110308
  6. EMEND [Concomitant]
     Dosage: UNK
     Route: 048
  7. LEUCOVORIN CALCIUM [Suspect]
     Route: 041
     Dates: start: 20110123, end: 20110308
  8. PROTECADIN [Concomitant]
     Dosage: UNK
     Route: 048
  9. MUCOSTA [Concomitant]
     Dosage: UNK
     Route: 048
  10. FLUOROURACIL [Suspect]
     Indication: COLORECTAL CANCER
     Route: 041
     Dates: start: 20100727, end: 20110111
  11. SHAKUYAKUKANZOUTOU [Concomitant]
     Dosage: UNK
     Route: 048
  12. RAMELTEON [Concomitant]
     Dosage: UNK
     Route: 042
  13. OXALIPLATIN [Suspect]
     Indication: COLORECTAL CANCER
     Route: 041
     Dates: start: 20100727, end: 20110111
  14. DERMOVATE [Concomitant]
     Dosage: UNK
     Route: 062
  15. DECADRON [Suspect]
     Dosage: UNK
     Route: 042
  16. CELECOXIB [Concomitant]
     Dosage: UNK
     Route: 048

REACTIONS (6)
  - HEPATIC ENCEPHALOPATHY [None]
  - DERMATITIS ACNEIFORM [None]
  - PARONYCHIA [None]
  - HYPERSENSITIVITY [None]
  - STOMATITIS [None]
  - HYPOKALAEMIA [None]
